FAERS Safety Report 5872287-X (Version None)
Quarter: 2008Q3

REPORT INFORMATION
  Report Type: 
  Country: None (occurrence: None)
  Receive Date: 20080905
  Receipt Date: 20080715
  Transmission Date: 20090109
  Serious: Yes (Other)
  Sender: FDA-Public Use
  Company Number: US-PURDUE-USA_2008_0034526

PATIENT
  Sex: Male

DRUGS (1)
  1. OXYCONTIN [Suspect]
     Indication: PAIN
     Dosage: 20 MG, Q8H PRN
     Route: 048
     Dates: start: 20000531, end: 20021009

REACTIONS (3)
  - AMNESIA [None]
  - CHEST PAIN [None]
  - STENT PLACEMENT [None]
